FAERS Safety Report 4415043-1 (Version None)
Quarter: 2004Q3

REPORT INFORMATION
  Report Type: 
  Country: None (occurrence: None)
  Receive Date: 20040730
  Receipt Date: 20040727
  Transmission Date: 20050211
  Serious: No
  Sender: FDA-Public Use
  Company Number: 2004UW08858

PATIENT
  Age: 12 Year
  Sex: Male
  Weight: 28.123 kg

DRUGS (4)
  1. PULMICORT RESPULES [Suspect]
     Indication: COUGH
     Dosage: 0.5 MG DAILY IH
     Route: 055
     Dates: start: 20040426, end: 20040427
  2. ALBUTEROL [Concomitant]
  3. AUGMENTIN - SLOW RELEASE [Concomitant]
  4. VIGAMOX [Concomitant]

REACTIONS (2)
  - CONDITION AGGRAVATED [None]
  - CONVULSION [None]
